FAERS Safety Report 23313368 (Version 2)
Quarter: 2025Q2

REPORT INFORMATION
  Report Type: Spontaneous
  Country: JP (occurrence: JP)
  Receive Date: 20231219
  Receipt Date: 20250502
  Transmission Date: 20250716
  Serious: Yes (Hospitalization, Other)
  Sender: AKEBIA THERAPEUTICS
  Company Number: JP-JT-EVA202301688AKEBIAP

PATIENT
  Sex: Male

DRUGS (3)
  1. FERRIC CITRATE ANHYDROUS [Suspect]
     Active Substance: FERRIC CITRATE ANHYDROUS
     Indication: Hyperphosphataemia
     Dosage: 1 DOSAGE FORM, Q8H
     Route: 048
  2. FERRIC CITRATE ANHYDROUS [Suspect]
     Active Substance: FERRIC CITRATE ANHYDROUS
     Dosage: 2 DOSAGE FORM, Q8H
     Route: 048
  3. CALCIUM CARBONATE [Suspect]
     Active Substance: CALCIUM CARBONATE
     Indication: Hyperphosphataemia
     Route: 048

REACTIONS (9)
  - Pneumonia [Unknown]
  - Pleurisy [Unknown]
  - Dizziness [Unknown]
  - Anaemia [Unknown]
  - Blood phosphorus increased [Unknown]
  - Diarrhoea [Unknown]
  - Faeces discoloured [Unknown]
  - Blood calcium increased [Unknown]
  - Intentional product misuse [Unknown]

NARRATIVE: CASE EVENT DATE: 20230101
